FAERS Safety Report 8856513 (Version 1)
Quarter: 2012Q4

REPORT INFORMATION
  Report Type: Spontaneous
  Country: US (occurrence: None)
  Receive Date: 20121024
  Receipt Date: 20121024
  Transmission Date: 20130627
  Serious: Yes (Hospitalization)
  Sender: FDA-Public Use
  Company Number: None

PATIENT
  Age: 63 Year
  Sex: Female
  Weight: 102.06 kg

DRUGS (4)
  1. METHYLPREDNISOLONE ACETATE [Suspect]
     Indication: BACK PAIN
     Dosage: 1 time
     Route: 008
     Dates: start: 20120827
  2. OMNIPAQUE PF [Concomitant]
  3. LIDOCAINE PF [Concomitant]
  4. CHLORAPREP [Concomitant]

REACTIONS (1)
  - Meningitis [None]
